FAERS Safety Report 8829898 (Version 1)
Quarter: 2012Q4

REPORT INFORMATION
  Report Type: Spontaneous
  Country: US (occurrence: None)
  Receive Date: 20121004
  Receipt Date: 20121004
  Transmission Date: 20130627
  Serious: Yes (Hospitalization)
  Sender: FDA-Public Use
  Company Number: 2012AP003167

PATIENT
  Age: 20 Year
  Sex: Male

DRUGS (8)
  1. QUETIAPINE FUMARATE [Suspect]
     Indication: MULTIPLE DRUG OVERDOSE INTENTIONAL
  2. QUETIAPINE FUMARATE [Suspect]
     Indication: ANXIETY DEPRESSION
  3. CLONAZEPAM [Suspect]
     Indication: MULTIPLE DRUG OVERDOSE INTENTIONAL
  4. CLONAZEPAM [Suspect]
     Indication: ANXIETY DEPRESSION
  5. ESCITALOPRAM [Suspect]
     Indication: MULTIPLE DRUG OVERDOSE INTENTIONAL
  6. ESCITALOPRAM [Suspect]
     Indication: ANXIETY DEPRESSION
  7. PERCOCET [Suspect]
     Indication: MULTIPLE DRUG OVERDOSE INTENTIONAL
  8. COCAINE [Suspect]

REACTIONS (6)
  - Intentional overdose [None]
  - Serotonin syndrome [None]
  - Depressed mood [None]
  - Condition aggravated [None]
  - Wrong technique in drug usage process [None]
  - Incorrect route of drug administration [None]
